FAERS Safety Report 7039766-3 (Version None)
Quarter: 2010Q4

REPORT INFORMATION
  Report Type: 
  Country: None (occurrence: None)
  Receive Date: 20101012
  Receipt Date: 20100930
  Transmission Date: 20110411
  Serious: Yes (Other)
  Sender: FDA-Public Use
  Company Number: US-AMGEN-US275344

PATIENT
  Sex: Male
  Weight: 146.2 kg

DRUGS (1)
  1. ENBREL [Suspect]
     Indication: PSORIASIS
     Route: 058
     Dates: start: 20070525, end: 20080418

REACTIONS (1)
  - TUBERCULIN TEST POSITIVE [None]
